FAERS Safety Report 6826828-6 (Version None)
Quarter: 2010Q3

REPORT INFORMATION
  Report Type: 
  Country: None (occurrence: None)
  Receive Date: 20100709
  Receipt Date: 20100628
  Transmission Date: 20110219
  Serious: Yes (Hospitalization)
  Sender: FDA-Public Use
  Company Number: FR-ROCHE-698662

PATIENT
  Sex: Female

DRUGS (3)
  1. MYCOPHENOLATE MOFETIL [Suspect]
     Dosage: THERAPY INTERRUPTED
     Route: 048
     Dates: start: 20060629
  2. BELATACEPT [Suspect]
     Dosage: THERAPY INTERRUPTED
     Route: 042
     Dates: start: 20060901
  3. CORTANCYL [Suspect]
     Dosage: THERAPY INTERRUPTED
     Route: 048
     Dates: start: 20061212

REACTIONS (1)
  - ACUTE RESPIRATORY DISTRESS SYNDROME [None]
